FAERS Safety Report 5524005-2 (Version None)
Quarter: 2007Q4

REPORT INFORMATION
  Report Type: 
  Country: None (occurrence: None)
  Receive Date: 20071121
  Receipt Date: 20071112
  Transmission Date: 20080405
  Serious: Yes (Hospitalization, Other)
  Sender: FDA-Public Use
  Company Number: CH-GENENTECH-251620

PATIENT
  Age: 64 Year

DRUGS (9)
  1. MABTHERA [Suspect]
     Indication: PROPHYLAXIS AGAINST TRANSPLANT REJECTION
     Dosage: 28 G, UNK
     Route: 041
     Dates: start: 20050601, end: 20070922
  2. MYCOPHENOLATE SODIUM [Suspect]
     Indication: DRUG USE FOR UNKNOWN INDICATION
     Dosage: 500 MG, BID
     Route: 048
     Dates: start: 20050601, end: 20071008
  3. PREDNISONE TAB [Concomitant]
     Indication: DRUG USE FOR UNKNOWN INDICATION
  4. TOREM [Concomitant]
     Indication: DRUG USE FOR UNKNOWN INDICATION
  5. BELOC [Concomitant]
     Indication: DRUG USE FOR UNKNOWN INDICATION
  6. ADALAT [Concomitant]
     Indication: DRUG USE FOR UNKNOWN INDICATION
  7. LAMICTAL [Concomitant]
     Indication: DRUG USE FOR UNKNOWN INDICATION
  8. PLAVIX [Concomitant]
     Indication: DRUG USE FOR UNKNOWN INDICATION
  9. PRAVASTATIN [Concomitant]
     Indication: DRUG USE FOR UNKNOWN INDICATION

REACTIONS (1)
  - INTERSTITIAL LUNG DISEASE [None]
